FAERS Safety Report 8423294-4 (Version None)
Quarter: 2012Q2

REPORT INFORMATION
  Report Type: 
  Country: None (occurrence: None)
  Receive Date: 20120608
  Receipt Date: 20120604
  Transmission Date: 20120825
  Serious: Yes (Death)
  Sender: FDA-Public Use
  Company Number: JP-AMGEN-JPNCT2012035706

PATIENT
  Age: 74 Year
  Sex: Female
  Weight: 52 kg

DRUGS (6)
  1. PURSENNID [Concomitant]
     Indication: CONSTIPATION
     Dosage: UNCERTAINTY
     Route: 048
  2. ROMIPLOSTIM - KHK [Suspect]
     Indication: IDIOPATHIC THROMBOCYTOPENIC PURPURA
     Dosage: 1 MG/KG, UNK
     Route: 058
     Dates: start: 20120120, end: 20120120
  3. FAMOTIDINE [Concomitant]
     Indication: PROPHYLAXIS
     Dosage: UNCERTAINTY
     Route: 065
  4. LANSOPRAZOLE [Concomitant]
     Indication: PROPHYLAXIS
     Dosage: UNCERTAINTY
     Route: 048
  5. VENOGLOBULIN [Concomitant]
     Indication: IDIOPATHIC THROMBOCYTOPENIC PURPURA
     Route: 065
     Dates: start: 20120108, end: 20120112
  6. IRON SUCROSE [Concomitant]
     Indication: ANAEMIA
     Dosage: UNCERTAINTY
     Route: 040

REACTIONS (1)
  - CEREBRAL HAEMORRHAGE [None]
